FAERS Safety Report 14244607 (Version 2)
Quarter: 2018Q2

REPORT INFORMATION
  Report Type: Spontaneous
  Country: US (occurrence: US)
  Receive Date: 20171201
  Receipt Date: 20180509
  Transmission Date: 20180711
  Serious: Yes (Hospitalization)
  Sender: FDA-Public Use
  Company Number: US-PFIZER INC-2017514330

PATIENT
  Age: 57 Year
  Sex: Male
  Weight: 127 kg

DRUGS (10)
  1. GENOTROPIN [Suspect]
     Active Substance: SOMATROPIN
     Indication: THYROID DISORDER
  2. GENOTROPIN [Suspect]
     Active Substance: SOMATROPIN
     Indication: THYROID DISORDER
  3. GENOTROPIN [Suspect]
     Active Substance: SOMATROPIN
     Indication: ROUTINE HEALTH MAINTENANCE
     Dosage: 0.2 MG, 1X/DAY
  4. GENOTROPIN [Suspect]
     Active Substance: SOMATROPIN
     Indication: HYPOTHALAMO-PITUITARY DISORDER
  5. GENOTROPIN [Suspect]
     Active Substance: SOMATROPIN
     Indication: HYPOTHALAMO-PITUITARY DISORDER
  6. GENOTROPIN [Suspect]
     Active Substance: SOMATROPIN
     Indication: ROUTINE HEALTH MAINTENANCE
     Dosage: 0.2 MG, 1X/DAY (0.2MG INJECTION ONCE A DAY)
     Dates: start: 2016
  7. GENOTROPIN [Suspect]
     Active Substance: SOMATROPIN
     Indication: WEIGHT DECREASED
     Dosage: 0.4MG INJECTION ONCE A DAY
     Dates: start: 201705
  8. GENOTROPIN [Suspect]
     Active Substance: SOMATROPIN
     Indication: THYROID DISORDER
  9. GENOTROPIN [Suspect]
     Active Substance: SOMATROPIN
     Indication: HYPOTHALAMO-PITUITARY DISORDER
     Dosage: 0.2 MG, 1X/DAY (0.2MG INJECTION ONCE A DAY)
  10. GENOTROPIN [Suspect]
     Active Substance: SOMATROPIN
     Indication: WEIGHT DECREASED
     Dosage: 0.4MG INJECTION ONCE A DAY
     Dates: start: 201705

REACTIONS (7)
  - Lower limb fracture [Recovered/Resolved with Sequelae]
  - Drug administered in wrong device [Unknown]
  - Incorrect dose administered [Unknown]
  - Road traffic accident [Recovered/Resolved with Sequelae]
  - Post procedural complication [Unknown]
  - Cerebral disorder [Unknown]
  - Wrong technique in device usage process [Unknown]

NARRATIVE: CASE EVENT DATE: 20170123
